FAERS Safety Report 17661411 (Version 1)
Quarter: 2020Q2

REPORT INFORMATION
  Report Type: Spontaneous
  Country: US (occurrence: US)
  Receive Date: 20200410
  Receipt Date: 20200410
  Transmission Date: 20200713
  Serious: Yes (Hospitalization)
  Sender: FDA-Public Use
  Company Number: None

PATIENT
  Age: 72 Year
  Sex: Female

DRUGS (8)
  1. STELARA [Suspect]
     Active Substance: USTEKINUMAB
     Indication: CROHN^S DISEASE
     Route: 058
     Dates: start: 20171027
  2. ALLOPURINOL. [Concomitant]
     Active Substance: ALLOPURINOL
  3. AZATHIOPRINE. [Concomitant]
     Active Substance: AZATHIOPRINE
  4. SINGULAIR [Concomitant]
     Active Substance: MONTELUKAST SODIUM
  5. CEPHALEXIN. [Concomitant]
     Active Substance: CEPHALEXIN
  6. UCERIS [Concomitant]
     Active Substance: BUDESONIDE
  7. BOTOX [Concomitant]
     Active Substance: ONABOTULINUMTOXINA
  8. PREDNISONE. [Concomitant]
     Active Substance: PREDNISONE

REACTIONS (1)
  - Hospitalisation [None]

NARRATIVE: CASE EVENT DATE: 20200320
